FAERS Safety Report 4583445-9 (Version None)
Quarter: 2005Q1

REPORT INFORMATION
  Report Type: 
  Country: None (occurrence: None)
  Receive Date: 20050211
  Receipt Date: 20050126
  Transmission Date: 20050727
  Serious: Yes (Hospitalization, Other)
  Sender: FDA-Public Use
  Company Number: 200408705

PATIENT
  Age: 6 Year
  Sex: Female

DRUGS (1)
  1. BOTOX PURIFIED NEUROTOXIN COMPLEX [Suspect]
     Indication: MUSCLE SPASTICITY
     Dosage: 90 UNITS ONCE IM
     Route: 030
     Dates: start: 20040120

REACTIONS (2)
  - LOSS OF CONSCIOUSNESS [None]
  - REYE'S SYNDROME [None]
